FAERS Safety Report 8582225-7 (Version None)
Quarter: 2012Q3

REPORT INFORMATION
  Report Type: 
  Country: None (occurrence: None)
  Receive Date: 20120809
  Receipt Date: 20120730
  Transmission Date: 20120928
  Serious: Yes (Hospitalization, Other)
  Sender: FDA-Public Use
  Company Number: US-ELI_LILLY_AND_COMPANY-US201205008280

PATIENT
  Age: 75 Year
  Sex: Female
  Weight: 70.748 kg

DRUGS (4)
  1. THEOPHYLLINE [Concomitant]
     Dosage: UNK, UNKNOWN
  2. FORTEO [Suspect]
     Indication: OSTEOPOROSIS
     Dosage: 20 UG, QD
     Dates: start: 20111101
  3. DILANTIN [Concomitant]
     Dosage: UNK, UNKNOWN
  4. PHENOBARBITAL TAB [Concomitant]
     Dosage: UNK, UNKNOWN

REACTIONS (7)
  - CHRONIC OBSTRUCTIVE PULMONARY DISEASE [None]
  - THROAT IRRITATION [None]
  - WEIGHT DECREASED [None]
  - DECREASED APPETITE [None]
  - FALL [None]
  - HUMERUS FRACTURE [None]
  - PAIN [None]
